FAERS Safety Report 13755831 (Version 3)
Quarter: 2017Q3

REPORT INFORMATION
  Report Type: Spontaneous
  Country: US (occurrence: US)
  Receive Date: 20170714
  Receipt Date: 20170818
  Transmission Date: 20171127
  Serious: Yes (Hospitalization, Other)
  Sender: FDA-Public Use
  Company Number: US-TURING PHARMACEUTICALS-2017TNG00035

PATIENT
  Age: 35 Year
  Sex: Female
  Weight: 95.24 kg

DRUGS (9)
  1. MONTELUKAST [Concomitant]
     Active Substance: MONTELUKAST SODIUM
     Dosage: 10 MG, 1X/DAY
     Route: 048
     Dates: start: 201702
  2. VITAMIN D2 [Concomitant]
     Active Substance: ERGOCALCIFEROL
     Dosage: 50000 U, 2X/WEEK ON WEDNESDAY AND SUNDAY
     Route: 048
  3. DAPSONE. [Concomitant]
     Active Substance: DAPSONE
     Dosage: 100 MG, 1X/DAY
     Route: 048
  4. L-THYROXINE [Concomitant]
     Active Substance: LEVOTHYROXINE
     Dosage: 75 ?G, 1X/DAY
     Dates: start: 201601
  5. PANTOPRAZOLE [Concomitant]
     Active Substance: PANTOPRAZOLE
     Dosage: 40 MG, 1X/DAY
     Route: 048
     Dates: start: 201703
  6. CLINDAMYCIN. [Concomitant]
     Active Substance: CLINDAMYCIN
     Dosage: 450 MG, 4X/DAY
  7. DARAPRIM [Suspect]
     Active Substance: PYRIMETHAMINE
     Indication: TOXOPLASMOSIS
     Dosage: 75 MG, 1X/DAY IN THE MIDDLE OF THE DAY OR IN THE MORNING
     Route: 048
     Dates: start: 20170216
  8. LEUCOVORINE [Concomitant]
     Active Substance: LEUCOVORIN
     Dosage: 25 MG, 1X/DAY IN THE MORNING
     Route: 048
     Dates: start: 201602
  9. AZITHROMYCIN ANHYDROUS. [Concomitant]
     Active Substance: AZITHROMYCIN ANHYDROUS
     Dosage: 250 MG, 1X/DAY
     Dates: start: 2011, end: 20170623

REACTIONS (16)
  - Fatigue [Not Recovered/Not Resolved]
  - Vision blurred [Unknown]
  - Unresponsive to stimuli [Recovered/Resolved]
  - Hypoaesthesia [Not Recovered/Not Resolved]
  - Postictal state [Recovering/Resolving]
  - Dyspnoea [Recovered/Resolved]
  - Chest discomfort [Not Recovered/Not Resolved]
  - Blood glucose decreased [Recovered/Resolved]
  - Hypersensitivity [Unknown]
  - Lung infiltration [Unknown]
  - Skin disorder [Unknown]
  - Hemiparesis [Recovering/Resolving]
  - Seizure [Not Recovered/Not Resolved]
  - Decerebrate posture [Recovered/Resolved]
  - Pruritus [Unknown]
  - Limb discomfort [Not Recovered/Not Resolved]

NARRATIVE: CASE EVENT DATE: 2017
